FAERS Safety Report 5436389-4 (Version None)
Quarter: 2007Q3

REPORT INFORMATION
  Report Type: 
  Country: None (occurrence: None)
  Receive Date: 20070831
  Receipt Date: 20070821
  Transmission Date: 20080115
  Serious: No
  Sender: FDA-Public Use
  Company Number: A0671960A

PATIENT
  Age: 41 Year

DRUGS (2)
  1. ALLI [Suspect]
     Dates: start: 20070623
  2. MULTI-VITAMIN [Suspect]

REACTIONS (8)
  - ABDOMINAL DISTENSION [None]
  - CONSTIPATION [None]
  - DRUG INEFFECTIVE [None]
  - FLATULENCE [None]
  - ILL-DEFINED DISORDER [None]
  - INSOMNIA [None]
  - NAUSEA [None]
  - WEIGHT INCREASED [None]
